FAERS Safety Report 21939454 (Version 1)
Quarter: 2023Q1

REPORT INFORMATION
  Report Type: Report from Study
  Country: US (occurrence: US)
  Receive Date: 20230201
  Receipt Date: 20230201
  Transmission Date: 20230417
  Serious: No
  Sender: FDA-Public Use
  Company Number: US-EXELIXIS-CABO-21047093

PATIENT
  Sex: Male
  Weight: 122.45 kg

DRUGS (13)
  1. CABOMETYX [Suspect]
     Active Substance: CABOZANTINIB S-MALATE
     Indication: Renal cancer
     Dosage: 60 MG, QD
     Route: 048
     Dates: start: 20211103
  2. ACETAMINOPHEN\HYDROCODONE [Concomitant]
     Active Substance: ACETAMINOPHEN\HYDROCODONE
  3. URSODIOL [Concomitant]
     Active Substance: URSODIOL
  4. VITAMIN B1 [Concomitant]
     Active Substance: THIAMINE HYDROCHLORIDE
  5. LYRICA [Concomitant]
     Active Substance: PREGABALIN
  6. HYDROCORTISONE [Concomitant]
     Active Substance: HYDROCORTISONE
  7. CYMBALTA [Concomitant]
     Active Substance: DULOXETINE HYDROCHLORIDE
  8. METOPROLOL SUCCINATE [Concomitant]
     Active Substance: METOPROLOL SUCCINATE
  9. FOLIC ACID [Concomitant]
     Active Substance: FOLIC ACID
  10. ELIQUIS [Concomitant]
     Active Substance: APIXABAN
  11. VITAMIN C [Concomitant]
     Active Substance: ASCORBIC ACID
  12. MELATONIN [Concomitant]
     Active Substance: MELATONIN
  13. TACROLIMUS [Concomitant]
     Active Substance: TACROLIMUS

REACTIONS (1)
  - Adverse drug reaction [Unknown]
